FAERS Safety Report 24737846 (Version 1)
Quarter: 2024Q4

REPORT INFORMATION
  Report Type: Spontaneous
  Country: RO (occurrence: RO)
  Receive Date: 20241216
  Receipt Date: 20241216
  Transmission Date: 20250114
  Serious: Yes (Hospitalization, Other)
  Sender: MERCK
  Company Number: RO-009507513-2412ROU004314

PATIENT
  Age: 66 Year
  Sex: Female

DRUGS (1)
  1. PEMBROLIZUMAB [Suspect]
     Active Substance: PEMBROLIZUMAB
     Indication: Lung neoplasm malignant
     Dosage: UNK
     Dates: start: 201812, end: 202312

REACTIONS (14)
  - Malignant neoplasm progression [Unknown]
  - Malignant neoplasm progression [Unknown]
  - Immune-mediated enterocolitis [Recovered/Resolved]
  - Immune-mediated enterocolitis [Recovered/Resolved]
  - Radiation necrosis [Unknown]
  - Tumour ablation [Unknown]
  - Radiotherapy to lung [Unknown]
  - Headache [Unknown]
  - Dizziness [Unknown]
  - Nausea [Unknown]
  - Hepatitis B surface antigen positive [Unknown]
  - Eastern Cooperative Oncology Group performance status worsened [Unknown]
  - Therapy partial responder [Unknown]
  - Therapy partial responder [Unknown]

NARRATIVE: CASE EVENT DATE: 20181201
